FAERS Safety Report 6201302-9 (Version None)
Quarter: 2009Q2

REPORT INFORMATION
  Report Type: 
  Country: None (occurrence: None)
  Receive Date: 20090526
  Receipt Date: 20090515
  Transmission Date: 20091009
  Serious: Yes (Hospitalization, Other)
  Sender: FDA-Public Use
  Company Number: PHHY2009CA05648

PATIENT
  Sex: Female

DRUGS (2)
  1. SANDOSTATIN LAR [Suspect]
     Indication: ACROMEGALY
     Dosage: 30 MG, QMO
     Route: 030
     Dates: start: 20071227, end: 20090414
  2. PROPYL-THIOURACIL [Concomitant]

REACTIONS (8)
  - ALOPECIA [None]
  - BALANCE DISORDER [None]
  - BLOOD PRESSURE INCREASED [None]
  - DEFORMITY [None]
  - DEPRESSION [None]
  - NAUSEA [None]
  - PITUITARY TUMOUR REMOVAL [None]
  - SURGERY [None]
